FAERS Safety Report 5355126-5 (Version None)
Quarter: 2007Q2

REPORT INFORMATION
  Report Type: 
  Country: None (occurrence: None)
  Receive Date: 20070613
  Receipt Date: 20070607
  Transmission Date: 20071010
  Serious: Yes (Other)
  Sender: FDA-Public Use
  Company Number: PHEH2007US05524

PATIENT
  Age: 46 Year
  Sex: Female
  Weight: 62.585 kg

DRUGS (5)
  1. ZELNORM [Suspect]
     Indication: IRRITABLE BOWEL SYNDROME
     Dosage: UNK, QD
     Route: 048
     Dates: start: 20040101, end: 20050101
  2. ZELNORM [Suspect]
     Dosage: UNK, QD
     Route: 048
     Dates: start: 20070201, end: 20070315
  3. NEXIUM [Concomitant]
  4. ANTIHYPERTENSIVE DRUGS [Concomitant]
  5. DOXYCYCLINE [Concomitant]

REACTIONS (8)
  - ABDOMINAL PAIN [None]
  - BIOPSY COLON ABNORMAL [None]
  - COLITIS ISCHAEMIC [None]
  - COLONOSCOPY ABNORMAL [None]
  - GASTROINTESTINAL DISORDER [None]
  - HAEMATOCHEZIA [None]
  - MUCOUS STOOLS [None]
  - RECTAL HAEMORRHAGE [None]
